FAERS Safety Report 4383590-7 (Version None)
Quarter: 2004Q2

REPORT INFORMATION
  Report Type: 
  Country: None (occurrence: None)
  Receive Date: 20040618
  Receipt Date: 20040601
  Transmission Date: 20050107
  Serious: Yes (Other)
  Sender: FDA-Public Use
  Company Number: USA040669002

PATIENT
  Age: 63 Year
  Sex: Female

DRUGS (3)
  1. EVISTA [Suspect]
     Indication: OSTEOPOROSIS
     Dosage: 60 MG DAY
  2. CALCIUM [Concomitant]
  3. HORMONE REPLACEMENT THERAPY [Concomitant]

REACTIONS (9)
  - CONDITION AGGRAVATED [None]
  - DYSSTASIA [None]
  - FEELING HOT [None]
  - HAND DEFORMITY [None]
  - NIGHT SWEATS [None]
  - OSTEOARTHRITIS [None]
  - PAIN [None]
  - PHARMACEUTICAL PRODUCT COMPLAINT [None]
  - SQUAMOUS CELL CARCINOMA [None]
